FAERS Safety Report 17910591 (Version 2)
Quarter: 2020Q3

REPORT INFORMATION
  Report Type: Report from Study
  Country: US (occurrence: US)
  Receive Date: 20200618
  Receipt Date: 20200721
  Transmission Date: 20201103
  Serious: Yes (Other)
  Sender: FDA-Public Use
  Company Number: US-UCBSA-2020023987

PATIENT
  Age: 35 Year
  Sex: Female

DRUGS (1)
  1. CERTOLIZUMAB PEGOL [Suspect]
     Active Substance: CERTOLIZUMAB PEGOL
     Indication: PSORIASIS
     Dosage: 400 MILLIGRAM, EV 2 WEEKS(QOW)
     Dates: start: 20200508, end: 20200605

REACTIONS (2)
  - Psoriasis [Not Recovered/Not Resolved]
  - Drug ineffective [Unknown]

NARRATIVE: CASE EVENT DATE: 2020
